FAERS Safety Report 4407248-0 (Version None)
Quarter: 2004Q3

REPORT INFORMATION
  Report Type: 
  Country: None (occurrence: None)
  Receive Date: 20040726
  Receipt Date: 20040514
  Transmission Date: 20050211
  Serious: Yes (Death, Hospitalization, Disabling)
  Sender: FDA-Public Use
  Company Number: CA-ROCHE-367982

PATIENT
  Age: 71 Year
  Sex: Male
  Weight: 72.5 kg

DRUGS (7)
  1. CAPECITABINE [Suspect]
     Dosage: ACTUAL DOSE 2000 MG. FOR TWO WEEKS DOSING, ONE WEEK REST
     Route: 048
     Dates: start: 20040427, end: 20040509
  2. BLINDED BEVACIZUMAB [Suspect]
     Route: 042
     Dates: start: 20040427, end: 20040512
  3. OXALIPLATIN (AS COMPARATOR) [Suspect]
     Dosage: ACTUAL DOSE: 249.6 MG
     Route: 042
     Dates: start: 20040427, end: 20040512
  4. PAXIL [Concomitant]
     Dates: start: 20040215, end: 20040513
  5. APO-OXAZEPAM [Concomitant]
     Dates: start: 20040215, end: 20040513
  6. SOTALOL HCL [Concomitant]
     Dates: start: 20020615, end: 20040513
  7. CLONAZEPAM [Concomitant]
     Dates: start: 20020615, end: 20040513

REACTIONS (6)
  - BLOOD LACTIC ACID INCREASED [None]
  - COLITIS [None]
  - HYPOTENSION [None]
  - RENAL FAILURE ACUTE [None]
  - SEPTIC SHOCK [None]
  - SUBILEUS [None]
